FAERS Safety Report 15761418 (Version 1)
Quarter: 2018Q4

REPORT INFORMATION
  Report Type: Spontaneous
  Country: PT (occurrence: PT)
  Receive Date: 20181226
  Receipt Date: 20181226
  Transmission Date: 20190205
  Serious: Yes (Hospitalization)
  Sender: FDA-Public Use
  Company Number: PT-MYLANLABS-2018M1094620

PATIENT
  Age: 82 Year
  Sex: Female

DRUGS (3)
  1. POLYMYXIN B. [Suspect]
     Active Substance: POLYMYXIN B
     Indication: URINARY TRACT INFECTION
     Route: 065
  2. POLYMYXIN B. [Suspect]
     Active Substance: POLYMYXIN B
     Indication: KLEBSIELLA INFECTION
  3. HEPARIN [Suspect]
     Active Substance: HEPARIN SODIUM
     Indication: ANTICOAGULANT THERAPY
     Route: 065

REACTIONS (2)
  - Heparin-induced thrombocytopenia [Recovering/Resolving]
  - Acute kidney injury [Unknown]
